FAERS Safety Report 11630187 (Version 4)
Quarter: 2016Q1

REPORT INFORMATION
  Report Type: Report from Study
  Country: US (occurrence: US)
  Receive Date: 20151014
  Receipt Date: 20160201
  Transmission Date: 20160525
  Serious: Yes (Other)
  Sender: FDA-Public Use
  Company Number: US-JNJFOC-20150914749

PATIENT
  Age: 73 Year
  Sex: Male

DRUGS (2)
  1. ATIVAN [Concomitant]
     Active Substance: LORAZEPAM
  2. IMBRUVICA [Suspect]
     Active Substance: IBRUTINIB
     Indication: CHRONIC LYMPHOCYTIC LEUKAEMIA
     Route: 048
     Dates: start: 20150424

REACTIONS (9)
  - Nasopharyngitis [Unknown]
  - Feeling hot [Unknown]
  - Muscle spasms [Unknown]
  - Drug withdrawal syndrome [Unknown]
  - Ear infection [Unknown]
  - Abdominal discomfort [Unknown]
  - Ear haemorrhage [Unknown]
  - Ear neoplasm [Unknown]
  - Peripheral swelling [Unknown]

NARRATIVE: CASE EVENT DATE: 2015
